FAERS Safety Report 8512854-8 (Version None)
Quarter: 2012Q3

REPORT INFORMATION
  Report Type: 
  Country: None (occurrence: None)
  Receive Date: 20120716
  Receipt Date: 20120709
  Transmission Date: 20120928
  Serious: Yes (Death)
  Sender: FDA-Public Use
  Company Number: JP-TEVA-345627USA

PATIENT
  Age: 76 Year
  Sex: Female

DRUGS (1)
  1. BORTEZOMIB [Suspect]

REACTIONS (2)
  - DELIRIUM [None]
  - DISEASE PROGRESSION [None]
